FAERS Safety Report 20726172 (Version 1)
Quarter: 2022Q2

REPORT INFORMATION
  Report Type: Spontaneous
  Country: US (occurrence: None)
  Receive Date: 20220419
  Receipt Date: 20220419
  Transmission Date: 20220720
  Serious: Yes (Life-Threatening)
  Sender: FDA-Public Use
  Company Number: None

PATIENT
  Age: 79 Year
  Sex: Male
  Weight: 104.2 kg

DRUGS (8)
  1. CABOMETYX [Suspect]
     Active Substance: CABOZANTINIB S-MALATE
     Indication: Renal cell carcinoma
     Dosage: FREQUENCY : DAILY;?
     Route: 048
     Dates: start: 20220317, end: 20220326
  2. PREDNISONE [Concomitant]
     Active Substance: PREDNISONE
  3. FUROSEMIDE [Concomitant]
     Active Substance: FUROSEMIDE
  4. DOCUSATE [Concomitant]
     Active Substance: DOCUSATE
  5. DAPSONE [Concomitant]
     Active Substance: DAPSONE
  6. OMEPRAZOLE [Concomitant]
     Active Substance: OMEPRAZOLE
  7. IBUPROFEN [Concomitant]
     Active Substance: IBUPROFEN
  8. ACETAMINOPHEN [Concomitant]
     Active Substance: ACETAMINOPHEN

REACTIONS (1)
  - Acute myocardial infarction [None]

NARRATIVE: CASE EVENT DATE: 20220327
